FAERS Safety Report 7328544-3 (Version None)
Quarter: 2011Q1

REPORT INFORMATION
  Report Type: 
  Country: None (occurrence: None)
  Receive Date: 20110225
  Receipt Date: 20110225
  Transmission Date: 20110831
  Serious: Yes (Hospitalization)
  Sender: FDA-Public Use
  Company Number: None

PATIENT
  Age: 11 Year
  Sex: Male
  Weight: 46.6 kg

DRUGS (1)
  1. INTUNIV [Suspect]
     Indication: ATTENTION DEFICIT/HYPERACTIVITY DISORDER
     Dosage: 3MG DAILY PO
     Route: 048

REACTIONS (4)
  - BRONCHOPNEUMONIA [None]
  - SINUS BRADYCARDIA [None]
  - ELECTROCARDIOGRAM QT PROLONGED [None]
  - STREPTOCOCCUS TEST POSITIVE [None]
